FAERS Safety Report 21341318 (Version 9)
Quarter: 2024Q3

REPORT INFORMATION
  Report Type: Report from Study
  Country: DE (occurrence: DE)
  Receive Date: 20220916
  Receipt Date: 20240925
  Transmission Date: 20241017
  Serious: No
  Sender: ROCHE
  Company Number: DE-ROCHE-3056413

PATIENT
  Age: 45 Year
  Sex: Male
  Weight: 87.0 kg

DRUGS (14)
  1. OCREVUS [Suspect]
     Active Substance: OCRELIZUMAB
     Indication: Relapsing multiple sclerosis
     Route: 042
     Dates: start: 20180614, end: 20180628
  2. OCREVUS [Suspect]
     Active Substance: OCRELIZUMAB
     Route: 042
     Dates: start: 20181213
  3. PFIZER-BIONTECH COVID-19 VACCINE [Concomitant]
     Active Substance: TOZINAMERAN
     Indication: COVID-19 immunisation
     Route: 030
     Dates: start: 20230105, end: 20230105
  4. PFIZER-BIONTECH COVID-19 VACCINE [Concomitant]
     Active Substance: TOZINAMERAN
     Route: 030
     Dates: start: 20211102, end: 20211102
  5. PFIZER-BIONTECH COVID-19 VACCINE [Concomitant]
     Active Substance: TOZINAMERAN
     Route: 030
     Dates: start: 20220105, end: 20220105
  6. COMIRNATY [Concomitant]
     Indication: COVID-19 immunisation
     Route: 030
     Dates: start: 20210615, end: 20210615
  7. COMIRNATY [Concomitant]
     Route: 030
     Dates: start: 20210506, end: 20210506
  8. VIGANTOL [Concomitant]
     Indication: Nutritional supplementation
     Route: 048
     Dates: start: 20191212, end: 20201208
  9. RANITIDINE HYDROCHLORIDE [Concomitant]
     Active Substance: RANITIDINE HYDROCHLORIDE
     Indication: Prophylaxis
     Route: 042
     Dates: start: 20180614, end: 20180628
  10. RANITIDINE HYDROCHLORIDE [Concomitant]
     Active Substance: RANITIDINE HYDROCHLORIDE
     Route: 042
     Dates: start: 20181213, end: 20200611
  11. CHOLECALCIFEROL [Concomitant]
     Active Substance: CHOLECALCIFEROL
     Indication: Prophylaxis
     Route: 048
     Dates: start: 20201116
  12. CIMETIDINE [Concomitant]
     Active Substance: CIMETIDINE
     Indication: Premedication
     Route: 048
     Dates: start: 20200611
  13. EBASTINE [Concomitant]
     Active Substance: EBASTINE
  14. EBASTINE [Concomitant]
     Active Substance: EBASTINE

REACTIONS (9)
  - Monocyte count increased [Recovered/Resolved]
  - COVID-19 [Recovered/Resolved]
  - Mite allergy [Unknown]
  - Sinusitis [Unknown]
  - Platelet count increased [Recovered/Resolved]
  - Adjustment disorder [Unknown]
  - Influenza [Recovered/Resolved]
  - COVID-19 [Recovered/Resolved]
  - Bronchitis [Recovered/Resolved]

NARRATIVE: CASE EVENT DATE: 20220222
